FAERS Safety Report 16728135 (Version 2)
Quarter: 2019Q3

REPORT INFORMATION
  Report Type: Spontaneous
  Country: US (occurrence: US)
  Receive Date: 20190822
  Receipt Date: 20190916
  Transmission Date: 20191005
  Serious: No
  Sender: FDA-Public Use
  Company Number: US-009507513-1908USA008142

PATIENT
  Age: 39 Year
  Sex: Female

DRUGS (8)
  1. MESALAMINE. [Concomitant]
     Active Substance: MESALAMINE
  2. Q-10 [Concomitant]
  3. LIALDA [Concomitant]
     Active Substance: MESALAMINE
  4. DESOGESTREL (+) ETHINYL ESTRADIOL [Concomitant]
     Active Substance: DESOGESTREL\ETHINYL ESTRADIOL
  5. BUSPIRONE HYDROCHLORIDE. [Concomitant]
     Active Substance: BUSPIRONE HYDROCHLORIDE
  6. FOLLISTIM [Suspect]
     Active Substance: FOLLITROPIN
     Indication: INFERTILITY FEMALE
     Dosage: 225 UNITS DAILY (STRENGTH: 900 IU/ 1.08 ML)
     Route: 058
     Dates: start: 20190725
  7. VITAMIN D3 BON [Concomitant]
  8. VITAMINS (UNSPECIFIED) [Concomitant]
     Active Substance: VITAMINS

REACTIONS (2)
  - Injection site erythema [Unknown]
  - Injection site pruritus [Unknown]

NARRATIVE: CASE EVENT DATE: 201907
